FAERS Safety Report 20035154 (Version 2)
Quarter: 2021Q4

REPORT INFORMATION
  Report Type: Spontaneous
  Country: US (occurrence: US)
  Receive Date: 20211104
  Receipt Date: 20211116
  Transmission Date: 20220303
  Serious: Yes (Life-Threatening, Hospitalization)
  Sender: FDA-Public Use
  Company Number: US-TEVA-2021-US-1972619

PATIENT
  Age: 34 Year
  Sex: Male

DRUGS (1)
  1. LAMOTRIGINE [Suspect]
     Active Substance: LAMOTRIGINE
     Indication: Bipolar disorder
     Route: 065

REACTIONS (9)
  - Systemic lupus erythematosus [Unknown]
  - Haemophagocytic lymphohistiocytosis [Unknown]
  - Acute kidney injury [Unknown]
  - Proteinuria [Unknown]
  - Pancreatitis acute [Unknown]
  - Delirium [Unknown]
  - Tachycardia [Unknown]
  - Tachypnoea [Unknown]
  - Retroperitoneal haemorrhage [Unknown]
